FAERS Safety Report 7230373-6 (Version None)
Quarter: 2011Q1

REPORT INFORMATION
  Report Type: 
  Country: None (occurrence: None)
  Receive Date: 20110118
  Receipt Date: 20101201
  Transmission Date: 20110831
  Serious: Yes (Other)
  Sender: FDA-Public Use
  Company Number: US-JNJFOC-20100108158

PATIENT
  Sex: Female
  Weight: 99.79 kg

DRUGS (2)
  1. TYLENOL 8 HOUR MUSCLES + PAIN [Suspect]
  2. TYLENOL 8 HOUR MUSCLES + PAIN [Suspect]
     Indication: PAIN

REACTIONS (4)
  - PRODUCT QUALITY ISSUE [None]
  - HEADACHE [None]
  - VERTIGO [None]
  - GASTROENTERITIS [None]
